FAERS Safety Report 8450632 (Version 2)
Quarter: 2012Q4

REPORT INFORMATION
  Report Type: Report from Study
  Country: DE (occurrence: DE)
  Receive Date: 20120309
  Receipt Date: 20120908
  Transmission Date: 20130627
  Serious: Yes (Hospitalization)
  Sender: FDA-Public Use
  Company Number: DE-ABBOTT-12P-062-0912202-00

PATIENT
  Age: 51 Year
  Sex: Female

DRUGS (3)
  1. HUMIRA 40 MG/ 0.8 ML PRE-FILLED SYRINGE [Suspect]
     Indication: RHEUMATOID ARTHRITIS
     Route: 058
     Dates: start: 20100120, end: 20120118
  2. HUMIRA 40 MG/ 0.8 ML PRE-FILLED SYRINGE [Suspect]
  3. METHOTREXATE [Concomitant]

REACTIONS (4)
  - Synovial cyst [Not Recovered/Not Resolved]
  - Chondrectomy [Not Recovered/Not Resolved]
  - Meniscus removal [Not Recovered/Not Resolved]
  - Cyst [Not Recovered/Not Resolved]
